FAERS Safety Report 7811983-1 (Version None)
Quarter: 2011Q4

REPORT INFORMATION
  Report Type: 
  Country: None (occurrence: None)
  Receive Date: 20111013
  Receipt Date: 20111006
  Transmission Date: 20120403
  Serious: Yes (Other)
  Sender: FDA-Public Use
  Company Number: JO-ROXANE LABORATORIES, INC.-2011-RO-01427RO

PATIENT
  Age: 12 Year
  Sex: Female

DRUGS (5)
  1. CISPLATIN [Suspect]
     Indication: BONE SARCOMA
  2. DOXORUBICIN HCL [Suspect]
     Indication: BONE SARCOMA
  3. METHOTREXATE [Suspect]
     Indication: BONE SARCOMA
  4. LEUCOVORIN CALCIUM [Suspect]
     Indication: DRUG LEVEL INCREASED
  5. GLUCARPIDASE [Suspect]
     Indication: DRUG LEVEL INCREASED
     Route: 042

REACTIONS (14)
  - NAUSEA [None]
  - BLOOD CREATININE INCREASED [None]
  - ASPARTATE AMINOTRANSFERASE INCREASED [None]
  - OSTEONECROSIS OF JAW [None]
  - VOMITING [None]
  - BLOOD BILIRUBIN INCREASED [None]
  - DRUG LEVEL INCREASED [None]
  - BILIRUBIN CONJUGATED INCREASED [None]
  - ALANINE AMINOTRANSFERASE INCREASED [None]
  - LIVER DISORDER [None]
  - NEPHROPATHY TOXIC [None]
  - LIVER INJURY [None]
  - HAEMODIALYSIS [None]
  - THERAPEUTIC RESPONSE DECREASED [None]
